FAERS Safety Report 7574031 (Version 3)
Quarter: 2013Q1

REPORT INFORMATION
  Report Type: Spontaneous
  Country: BR (occurrence: BR)
  Receive Date: 20100907
  Receipt Date: 20130109
  Transmission Date: 20140127
  Serious: Yes (Other)
  Sender: FDA-Public Use
  Company Number: BR-JNJFOC-20100801341

PATIENT
  Age: 77 Year
  Sex: Female
  Weight: 96 kg

DRUGS (16)
  1. REMINYL ER [Suspect]
     Indication: DEMENTIA ALZHEIMER^S TYPE
     Route: 048
     Dates: start: 20100727, end: 20100823
  2. REMINYL ER [Suspect]
     Indication: DEMENTIA ALZHEIMER^S TYPE
     Route: 048
     Dates: start: 20100718
  3. REMINYL ER [Suspect]
     Indication: DEMENTIA ALZHEIMER^S TYPE
     Dosage: 1 CAPSULE IN THE MORNING AND 1 CAPSULE AT NIGHT
     Route: 048
     Dates: start: 2010
  4. REMINYL ER [Suspect]
     Indication: DEMENTIA ALZHEIMER^S TYPE
     Route: 048
     Dates: start: 20121227
  5. REMINYL ER [Suspect]
     Indication: VASCULAR DEMENTIA
     Route: 048
     Dates: start: 20100727, end: 20100823
  6. REMINYL ER [Suspect]
     Indication: VASCULAR DEMENTIA
     Route: 048
     Dates: start: 20121227
  7. REMINYL ER [Suspect]
     Indication: VASCULAR DEMENTIA
     Route: 048
     Dates: start: 20100718
  8. REMINYL ER [Suspect]
     Indication: VASCULAR DEMENTIA
     Dosage: 1 CAPSULE IN THE MORNING AND 1 CAPSULE AT NIGHT
     Route: 048
     Dates: start: 2010
  9. GABAPENTIN [Concomitant]
     Route: 065
  10. CARVEDILOL [Concomitant]
     Indication: HYPERTENSION
     Route: 065
  11. LOSARTAN [Concomitant]
     Indication: HYPERTENSION
     Route: 065
  12. ACETYLSALICYLIC ACID [Concomitant]
     Route: 065
  13. FUROSEMIDE [Concomitant]
     Route: 065
  14. VITAMIN D3 [Concomitant]
     Route: 065
  15. VITAMIN B COMPLEX [Concomitant]
     Route: 065
  16. SIMVASTATIN [Concomitant]
     Route: 065

REACTIONS (12)
  - Infection [Unknown]
  - Delirium [Recovered/Resolved]
  - Medication error [Recovered/Resolved]
  - Drug prescribing error [Recovered/Resolved]
  - Asthenia [Not Recovered/Not Resolved]
  - Pyrexia [Recovered/Resolved]
  - Nausea [Recovered/Resolved]
  - Vomiting [Recovering/Resolving]
  - Blood pressure increased [Recovered/Resolved]
  - Diarrhoea [Recovered/Resolved]
  - Malaise [Recovered/Resolved]
  - Decreased appetite [Recovered/Resolved]
